FAERS Safety Report 8156063-3 (Version None)
Quarter: 2012Q1

REPORT INFORMATION
  Report Type: 
  Country: None (occurrence: None)
  Receive Date: 20120222
  Receipt Date: 20120208
  Transmission Date: 20120608
  Serious: Yes (Hospitalization)
  Sender: FDA-Public Use
  Company Number: FR-CELGENEUS-056-21880-11120679

PATIENT
  Sex: Male

DRUGS (7)
  1. BORTEZOMIB [Suspect]
     Route: 065
     Dates: start: 20111107
  2. AMOXICILLIN TRIHYDRATE [Suspect]
     Indication: PROPHYLAXIS
     Route: 048
     Dates: start: 20111107, end: 20111129
  3. REVLIMID [Suspect]
     Dosage: 25 MILLIGRAM
     Route: 048
     Dates: start: 20111107
  4. LEUCOVORIN CALCIUM [Concomitant]
     Indication: PROPHYLAXIS
     Route: 048
     Dates: start: 20111107, end: 20111129
  5. BACTRIM [Suspect]
     Indication: PROPHYLAXIS
     Route: 048
     Dates: start: 20111107, end: 20111129
  6. VALACYCLOVIR HYDROCHLORIDE [Concomitant]
     Indication: PROPHYLAXIS
     Route: 048
     Dates: start: 20111107, end: 20111129
  7. DEXAMETHASONE [Suspect]
     Route: 065
     Dates: start: 20111107

REACTIONS (1)
  - DRUG RASH WITH EOSINOPHILIA AND SYSTEMIC SYMPTOMS [None]
